FAERS Safety Report 5046408-5 (Version None)
Quarter: 2006Q2

REPORT INFORMATION
  Report Type: 
  Country: None (occurrence: None)
  Receive Date: 20060629
  Receipt Date: 20060612
  Transmission Date: 20061013
  Serious: Yes (Hospitalization)
  Sender: FDA-Public Use
  Company Number: APP200600164

PATIENT
  Age: 67 Year
  Sex: Male
  Weight: 113.3993 kg

DRUGS (19)
  1. FLUOROURACIL [Suspect]
     Indication: ENDOCRINE PANCREATIC DISORDER
     Dosage: SEE IMAGE
     Route: 042
     Dates: start: 20060411, end: 20060411
  2. FLUOROURACIL [Suspect]
     Indication: PANCREATIC NEOPLASM
     Dosage: SEE IMAGE
     Route: 042
     Dates: start: 20060411, end: 20060411
  3. FLUOROURACIL [Suspect]
     Indication: ENDOCRINE PANCREATIC DISORDER
     Dosage: SEE IMAGE
     Route: 042
     Dates: start: 20060425, end: 20060425
  4. FLUOROURACIL [Suspect]
     Indication: PANCREATIC NEOPLASM
     Dosage: SEE IMAGE
     Route: 042
     Dates: start: 20060425, end: 20060425
  5. OXALIPLATIN (OXALIPLATIN) [Suspect]
     Indication: ENDOCRINE PANCREATIC DISORDER
     Dosage: 85 MG/M2, 2 WK, INTRAVENOUS
     Route: 042
     Dates: start: 20060411, end: 20060411
  6. OXALIPLATIN (OXALIPLATIN) [Suspect]
     Indication: PANCREATIC NEOPLASM
     Dosage: 85 MG/M2, 2 WK, INTRAVENOUS
     Route: 042
     Dates: start: 20060411, end: 20060411
  7. OXALIPLATIN (OXALIPLATIN) [Suspect]
     Indication: ENDOCRINE PANCREATIC DISORDER
     Dosage: 85 MG/M2, 2 WK, INTRAVENOUS
     Route: 042
     Dates: start: 20060425, end: 20060425
  8. OXALIPLATIN (OXALIPLATIN) [Suspect]
     Indication: PANCREATIC NEOPLASM
     Dosage: 85 MG/M2, 2 WK, INTRAVENOUS
     Route: 042
     Dates: start: 20060425, end: 20060425
  9. LEUCOVORIN CALCIUM [Suspect]
     Indication: ENDOCRINE PANCREATIC DISORDER
     Dosage: 14.2857 MG/M2 (200 MG/M2, 1 IN 2 WK), INTRAVENOUS
     Route: 042
     Dates: start: 20060411, end: 20060411
  10. LEUCOVORIN CALCIUM [Suspect]
     Indication: PANCREATIC NEOPLASM
     Dosage: 14.2857 MG/M2 (200 MG/M2, 1 IN 2 WK), INTRAVENOUS
     Route: 042
     Dates: start: 20060411, end: 20060411
  11. AVASTIN [Suspect]
     Indication: ENDOCRINE PANCREATIC DISORDER
     Dosage: 0.3571 MG/KG (5 MG/KG, 1 IN 2 WK), INTRAVENOUS
     Route: 042
     Dates: start: 20060411, end: 20060411
  12. AVASTIN [Suspect]
     Indication: PANCREATIC NEOPLASM
     Dosage: 0.3571 MG/KG (5 MG/KG, 1 IN 2 WK), INTRAVENOUS
     Route: 042
     Dates: start: 20060411, end: 20060411
  13. AVASTIN [Suspect]
     Indication: ENDOCRINE PANCREATIC DISORDER
     Dosage: 0.3571 MG/KG (5 MG/KG, 1 IN 2 WK), INTRAVENOUS
     Route: 042
     Dates: start: 20060425, end: 20060425
  14. AVASTIN [Suspect]
     Indication: PANCREATIC NEOPLASM
     Dosage: 0.3571 MG/KG (5 MG/KG, 1 IN 2 WK), INTRAVENOUS
     Route: 042
     Dates: start: 20060425, end: 20060425
  15. DEXAMETHASONE [Suspect]
     Indication: PROPHYLACTIC CHEMOTHERAPY
     Dosage: 1 IN 2 WK, INTRAVENOUS
     Route: 042
     Dates: start: 20060411, end: 20060425
  16. LORAZEPAM [Suspect]
     Indication: PROPHYLACTIC CHEMOTHERAPY
     Dosage: 0.0714 MG (1 MG, 1 IN 2 WK), ORAL
     Route: 048
     Dates: start: 20060411, end: 20060425
  17. GRANISETRON - SOLUTION [Suspect]
     Dosage: 85.7143 MCG (1200 MCG, 1 IN 2 WK), INTRAVENOUS
     Route: 042
     Dates: start: 20060425, end: 20060425
  18. PANTOPRAZOLE SODIUM [Concomitant]
  19. OCTREOTIDE ACETATE [Concomitant]

REACTIONS (8)
  - ASPARTATE AMINOTRANSFERASE INCREASED [None]
  - BACTERAEMIA [None]
  - CHILLS [None]
  - DEHYDRATION [None]
  - DIARRHOEA [None]
  - FATIGUE [None]
  - HYPOTENSION [None]
  - VOMITING [None]
